FAERS Safety Report 5144723-8 (Version None)
Quarter: 2006Q4

REPORT INFORMATION
  Report Type: 
  Country: None (occurrence: None)
  Receive Date: 20061031
  Receipt Date: 20061016
  Transmission Date: 20070319
  Serious: Yes (Other)
  Sender: FDA-Public Use
  Company Number: US200610002843

PATIENT
  Sex: Male

DRUGS (3)
  1. PROZAC [Suspect]
     Indication: DEPRESSION
     Dosage: 80 MG, ORAL
     Route: 048
     Dates: start: 19900101
  2. BUSPAR /AUS/ (BUSPIRONE HYDROCHLORIDE) [Concomitant]
  3. DEXEDRINE ^MEDEVA^ (DEXAMFETAMINE SULFATE) [Concomitant]

REACTIONS (8)
  - ABNORMAL DREAMS [None]
  - DIZZINESS [None]
  - DRUG DOSE OMISSION [None]
  - DRUG WITHDRAWAL SYNDROME [None]
  - ECONOMIC PROBLEM [None]
  - MOOD ALTERED [None]
  - NAUSEA [None]
  - TREATMENT NONCOMPLIANCE [None]
